FAERS Safety Report 17156379 (Version 1)
Quarter: 2019Q4

REPORT INFORMATION
  Report Type: Spontaneous
  Country: CA (occurrence: CA)
  Receive Date: 20191216
  Receipt Date: 20191216
  Transmission Date: 20200122
  Serious: Yes (Other)
  Sender: FDA-Public Use
  Company Number: CA-SA-2019SA341973

PATIENT
  Sex: Female

DRUGS (6)
  1. SULFASALAZINE. [Concomitant]
     Active Substance: SULFASALAZINE
     Dosage: 200 MG, BID
     Route: 065
     Dates: start: 2019
  2. HYDROXYCHLOROQUINE [Suspect]
     Active Substance: HYDROXYCHLOROQUINE
  3. PREDNISONE. [Suspect]
     Active Substance: PREDNISONE
     Indication: DERMATITIS ATOPIC
     Dosage: 15 MG, BID
     Route: 065
     Dates: start: 201810
  4. LEFLUNOMIDE. [Suspect]
     Active Substance: LEFLUNOMIDE
     Dosage: 200 MG, BID
     Route: 065
     Dates: start: 20181126, end: 20181204
  5. METHOTREXATE. [Concomitant]
     Active Substance: METHOTREXATE
     Indication: DERMATITIS ATOPIC
     Dosage: 20 MG, QW
     Route: 065
     Dates: start: 20190123
  6. SULFASALAZINE. [Concomitant]
     Active Substance: SULFASALAZINE
     Indication: DERMATITIS ATOPIC
     Dosage: 500 MG
     Route: 065
     Dates: start: 20190919

REACTIONS (4)
  - Drug ineffective [Unknown]
  - Macular degeneration [Unknown]
  - Contraindicated product administered [Unknown]
  - Pancreatitis [Unknown]
